FAERS Safety Report 25603113 (Version 1)
Quarter: 2025Q3

REPORT INFORMATION
  Report Type: Spontaneous
  Country: CA (occurrence: CA)
  Receive Date: 20250724
  Receipt Date: 20250724
  Transmission Date: 20251020
  Serious: Yes (Other)
  Sender: SANDOZ
  Company Number: CA-SANDOZ-SDZ2024CA082870

PATIENT
  Age: 39 Year
  Sex: Male
  Weight: 104 kg

DRUGS (1)
  1. ADALIMUMAB [Suspect]
     Active Substance: ADALIMUMAB
     Indication: Psoriasis
     Dosage: 40.0 MG, 1 EVERY 7 DAYS
     Route: 058

REACTIONS (4)
  - Cognitive disorder [Recovering/Resolving]
  - Encephalitis [Unknown]
  - Fatigue [Recovering/Resolving]
  - Nausea [Recovering/Resolving]
